FAERS Safety Report 6436302-7 (Version None)
Quarter: 2009Q4

REPORT INFORMATION
  Report Type: 
  Country: None (occurrence: None)
  Receive Date: 20091111
  Receipt Date: 20091104
  Transmission Date: 20100525
  Serious: Yes (Other)
  Sender: FDA-Public Use
  Company Number: B0561444A

PATIENT
  Sex: Female

DRUGS (2)
  1. IMIGRAN [Suspect]
     Indication: MIGRAINE
     Route: 065
  2. BOTOX [Concomitant]

REACTIONS (2)
  - ANGINA PECTORIS [None]
  - CARDIAC DISORDER [None]
